FAERS Safety Report 26171795 (Version 1)
Quarter: 2025Q4

REPORT INFORMATION
  Report Type: Spontaneous
  Country: US (occurrence: US)
  Receive Date: 20251217
  Receipt Date: 20251217
  Transmission Date: 20260118
  Serious: Yes (Other)
  Sender: SANOFI AVENTIS
  Company Number: US-SA-2025SA374568

PATIENT
  Age: 3 Year
  Sex: Male
  Weight: 14.96 kg

DRUGS (1)
  1. DUPIXENT [Suspect]
     Active Substance: DUPILUMAB
     Indication: Dermatitis atopic
     Dosage: 200 MG, Q4W
     Route: 058
     Dates: start: 202502, end: 202512

REACTIONS (2)
  - Croup infectious [Unknown]
  - Bronchitis [Unknown]

NARRATIVE: CASE EVENT DATE: 20251205
